FAERS Safety Report 8732369 (Version 2)
Quarter: 2012Q4

REPORT INFORMATION
  Report Type: 
  Country: GB (occurrence: GB)
  Receive Date: 20120820
  Receipt Date: 20120928
  Transmission Date: 20130627
  Serious: Yes (Other)
  Sender: FDA-Public Use
  Company Number: GB-GLAXOSMITHKLINE-B0822726A

PATIENT
  Age: 30 Year
  Sex: Female

DRUGS (2)
  1. VENTOLIN [Suspect]
  2. AMINOPHYLLINE [Concomitant]

REACTIONS (9)
  - Hallucination [Recovered/Resolved]
  - Rash pruritic [Recovered/Resolved]
  - Oedema mouth [Recovered/Resolved]
  - Dyspnoea [Recovered/Resolved]
  - Pharyngeal oedema [Recovered/Resolved]
  - Pyrexia [Recovered/Resolved]
  - Dizziness [Recovered/Resolved]
  - Malaise [Recovered/Resolved]
  - Influenza like illness [Recovered/Resolved]
